FAERS Safety Report 6419832-3 (Version None)
Quarter: 2009Q4

REPORT INFORMATION
  Report Type: 
  Country: None (occurrence: None)
  Receive Date: 20091013
  Receipt Date: 20080924
  Transmission Date: 20100525
  Serious: Yes (Hospitalization)
  Sender: FDA-Public Use
  Company Number: 1000001048

PATIENT
  Age: 63 Year
  Sex: Male
  Weight: 94 kg

DRUGS (11)
  1. LEXAPRO [Suspect]
     Dosage: 20 MG (20 MG, QD)
  2. SUNITINIB [Suspect]
     Indication: RENAL CELL CARCINOMA
     Dosage: 50 MG (QD)
     Dates: start: 20080529
  3. SORAFENIB [Suspect]
     Indication: RENAL CELL CARCINOMA
     Dosage: 800 MG (400 MG, BID)
     Dates: start: 20080529
  4. ACCUPRIL [Suspect]
     Dosage: 40 MG (40 MG, QD)
  5. OMACOR [Suspect]
     Dosage: 4000 MG (1000 MG, QID)
  6. COREG [Suspect]
     Dosage: 12.5 MG (12.5 MG, QD)
  7. HUMALOG [Suspect]
     Dosage: 50 UNITS (25 UNITS QAM, 25 UNITS QPM)
  8. HYDRALAZINE HCL [Suspect]
     Dosage: 25 MG, TID
  9. NOVOLOG [Suspect]
     Dosage: (100 UNITS/ML TID), SUBCUTANEOUS
     Route: 058
  10. PRAVACHOL [Suspect]
     Dosage: 40 MG (40 MG, QD)
  11. ASPIRIN [Concomitant]

REACTIONS (3)
  - BRADYCARDIA [None]
  - HYPOGLYCAEMIA [None]
  - SYNCOPE [None]
